FAERS Safety Report 8589582 (Version 5)
Quarter: 2012Q4

REPORT INFORMATION
  Report Type: 
  Country: US (occurrence: US)
  Receive Date: 20120531
  Receipt Date: 20121114
  Transmission Date: 20130627
  Serious: Yes (Hospitalization, Disabling, Other)
  Sender: FDA-Public Use
  Company Number: US-009507513-1205USA04582

PATIENT

DRUGS (8)
  1. FOSAMAX [Suspect]
     Indication: OSTEOPOROSIS PROPHYLAXIS
     Dosage: UNK
     Route: 048
     Dates: start: 19980326, end: 20100727
  2. FOSAMAX [Suspect]
     Indication: OSTEOPOROSIS
     Dosage: 10 mg, qd
     Route: 048
     Dates: start: 19990804, end: 20030418
  3. FOSAMAX [Suspect]
     Dosage: 70 mg, qw
     Route: 048
     Dates: start: 20030422, end: 20100727
  4. ALENDRONATE SODIUM [Suspect]
     Indication: OSTEOPOROSIS PROPHYLAXIS
     Dosage: 70 mg, UNK
     Route: 048
     Dates: start: 20080224, end: 20101011
  5. LOPID [Concomitant]
     Dosage: 600 mg, bid
  6. ALLEGRA [Concomitant]
  7. PENLAC [Concomitant]
  8. RANITIDINE [Concomitant]

REACTIONS (34)
  - Femur fracture [Recovered/Resolved]
  - Hip arthroplasty [Unknown]
  - Low turnover osteopathy [Unknown]
  - Osteoporosis [Unknown]
  - Stress fracture [Unknown]
  - Rotator cuff syndrome [Unknown]
  - Femur fracture [Unknown]
  - Rotator cuff repair [Unknown]
  - Osteoarthritis [Unknown]
  - Tenodesis [Unknown]
  - Adverse event [Unknown]
  - Shoulder arthroplasty [Unknown]
  - Cholecystitis chronic [Unknown]
  - Breast cancer [Unknown]
  - Deafness [Unknown]
  - Knee arthroplasty [Unknown]
  - Tooth extraction [Unknown]
  - Vitamin D deficiency [Unknown]
  - Influenza [Unknown]
  - Mass [Unknown]
  - Peritonsillar abscess [Unknown]
  - Hyperkeratosis [Unknown]
  - Abdominal hernia [Unknown]
  - Rotator cuff syndrome [Unknown]
  - Glucose tolerance impaired [Unknown]
  - Chronic obstructive pulmonary disease [Not Recovered/Not Resolved]
  - Aortic arteriosclerosis [Unknown]
  - Pain [Unknown]
  - Infection [Unknown]
  - Atelectasis [Unknown]
  - Device dislocation [Unknown]
  - Actinic keratosis [Unknown]
  - Gastrooesophageal reflux disease [Unknown]
  - Constipation [Unknown]
